FAERS Safety Report 13542237 (Version 1)
Quarter: 2017Q2

REPORT INFORMATION
  Report Type: Spontaneous
  Country: US (occurrence: US)
  Receive Date: 20170512
  Receipt Date: 20170512
  Transmission Date: 20170830
  Serious: Yes (Hospitalization, Other)
  Sender: FDA-Public Use
  Company Number: US-009507513-1705USA004071

PATIENT
  Age: 74 Year
  Sex: Male

DRUGS (2)
  1. GLOBULIN, IMMUNE [Suspect]
     Active Substance: HUMAN IMMUNOGLOBULIN G
     Indication: IMMUNE SYSTEM DISORDER
     Route: 042
  2. KEYTRUDA [Suspect]
     Active Substance: PEMBROLIZUMAB
     Indication: HEPATIC CANCER
     Dosage: 1 DOSE, UNK
     Dates: start: 201703

REACTIONS (15)
  - Hypotension [Unknown]
  - Autonomic nervous system imbalance [Unknown]
  - Pneumonia [Unknown]
  - Therapeutic response unexpected [Unknown]
  - Abdominal discomfort [Unknown]
  - Disorientation [Unknown]
  - Dehydration [Unknown]
  - Adverse event [Unknown]
  - Condition aggravated [Unknown]
  - Haemoptysis [Unknown]
  - Loss of consciousness [Unknown]
  - Blood sodium decreased [Unknown]
  - Product use in unapproved indication [Unknown]
  - Disorientation [Unknown]
  - Confusional state [Unknown]

NARRATIVE: CASE EVENT DATE: 2017
